FAERS Safety Report 5553421-8 (Version None)
Quarter: 2007Q4

REPORT INFORMATION
  Report Type: 
  Country: None (occurrence: None)
  Receive Date: 20071213
  Receipt Date: 20071130
  Transmission Date: 20080405
  Serious: Yes (Other)
  Sender: FDA-Public Use
  Company Number: FR-BAYER-200611070BFR

PATIENT
  Age: 33 Year
  Sex: Female

DRUGS (1)
  1. IZILOX [Suspect]
     Indication: LOBAR PNEUMONIA
     Dosage: TOTAL DAILY DOSE: 400 MG  UNIT DOSE: 400 MG
     Route: 048
     Dates: start: 20060901

REACTIONS (1)
  - ABORTION SPONTANEOUS [None]
